FAERS Safety Report 5840791-6 (Version None)
Quarter: 2008Q3

REPORT INFORMATION
  Report Type: 
  Country: None (occurrence: None)
  Receive Date: 20080811
  Receipt Date: 20080731
  Transmission Date: 20090109
  Serious: Yes (Other)
  Sender: FDA-Public Use
  Company Number: CA-PFIZER INC-2008064629

PATIENT
  Age: 23 Year
  Sex: Female

DRUGS (1)
  1. SYNAREL [Suspect]

REACTIONS (1)
  - INTRACRANIAL PRESSURE INCREASED [None]
